FAERS Safety Report 8112635-3 (Version None)
Quarter: 2012Q1

REPORT INFORMATION
  Report Type: 
  Country: None (occurrence: None)
  Receive Date: 20120203
  Receipt Date: 20120113
  Transmission Date: 20120608
  Serious: Yes (Hospitalization, Other)
  Sender: FDA-Public Use
  Company Number: SE-NOVOPROD-280503

PATIENT
  Age: 14 Year
  Sex: Female
  Weight: 70 kg

DRUGS (5)
  1. NORDITROPIN [Suspect]
     Indication: GROWTH HORMONE DEFICIENCY
     Dosage: 1 MG, QD
     Dates: start: 20060503
  2. MINIRIN [Concomitant]
  3. HYDROCORTONE                       /00028601/ [Concomitant]
  4. LEVOTHYROXINE SODIUM [Concomitant]
  5. EVOREL                             /00045401/ [Concomitant]

REACTIONS (3)
  - DISEASE RECURRENCE [None]
  - BRAIN STEM INFARCTION [None]
  - CRANIOPHARYNGIOMA BENIGN [None]
